FAERS Safety Report 24639577 (Version 1)
Quarter: 2024Q4

REPORT INFORMATION
  Report Type: Spontaneous
  Country: CN (occurrence: CN)
  Receive Date: 20241119
  Receipt Date: 20241119
  Transmission Date: 20250115
  Serious: Yes (Hospitalization)
  Sender: EISAI
  Company Number: CN-Eisai-EC-2024-178726

PATIENT
  Age: 29 Year
  Sex: Female

DRUGS (2)
  1. ERIBULIN [Suspect]
     Active Substance: ERIBULIN
     Indication: Breast cancer
     Route: 042
     Dates: start: 20240301
  2. DENOSUMAB [Suspect]
     Active Substance: DENOSUMAB
     Indication: Breast cancer
     Dosage: FREQUENCY UNKNOWN
     Route: 042
     Dates: start: 20240301

REACTIONS (1)
  - Myelosuppression [Unknown]

NARRATIVE: CASE EVENT DATE: 20240311
